FAERS Safety Report 25709342 (Version 1)
Quarter: 2025Q3

REPORT INFORMATION
  Report Type: Report from Study
  Country: CA (occurrence: CA)
  Receive Date: 20250821
  Receipt Date: 20250821
  Transmission Date: 20251021
  Serious: Yes (Other)
  Sender: JOHNSON AND JOHNSON
  Company Number: CA-JNJFOC-20250816912

PATIENT
  Age: 70 Year
  Sex: Male
  Weight: 76 kg

DRUGS (1)
  1. SIMPONI [Suspect]
     Active Substance: GOLIMUMAB
     Indication: Rheumatoid arthritis
     Route: 058

REACTIONS (3)
  - Colitis microscopic [Recovering/Resolving]
  - Coeliac disease [Recovering/Resolving]
  - Helicobacter infection [Recovering/Resolving]

NARRATIVE: CASE EVENT DATE: 20250712
